FAERS Safety Report 13177942 (Version 1)
Quarter: 2017Q1

REPORT INFORMATION
  Report Type: Report from Study
  Country: US (occurrence: US)
  Receive Date: 20170202
  Receipt Date: 20170202
  Transmission Date: 20170428
  Serious: Yes (Other)
  Sender: FDA-Public Use
  Company Number: US-AMGEN-USASL2017014622

PATIENT
  Sex: Female
  Weight: 58.7 kg

DRUGS (3)
  1. PROLIA [Suspect]
     Active Substance: DENOSUMAB
     Indication: OSTEOPOROSIS POSTMENOPAUSAL
     Dosage: UNK
     Route: 065
  2. PROLIA [Suspect]
     Active Substance: DENOSUMAB
     Indication: CHRONIC KIDNEY DISEASE
  3. MACROBID [Concomitant]
     Active Substance: NITROFURANTOIN\NITROFURANTOIN MONOHYDRATE
     Dosage: 100 MG, BID (7 DAYS)

REACTIONS (6)
  - Type 2 diabetes mellitus [Unknown]
  - Diabetic nephropathy [Unknown]
  - Hypertension [Unknown]
  - Herpes simplex [Recovered/Resolved]
  - Cystitis [Unknown]
  - Off label use [Unknown]
